FAERS Safety Report 6908644-X (Version None)
Quarter: 2010Q3

REPORT INFORMATION
  Report Type: 
  Country: None (occurrence: None)
  Receive Date: 20100805
  Receipt Date: 20100727
  Transmission Date: 20110219
  Serious: Yes (Death)
  Sender: FDA-Public Use
  Company Number: PFIZER INC-2005103484

PATIENT
  Sex: Male

DRUGS (15)
  1. NEURONTIN [Suspect]
     Indication: NEUROPATHY PERIPHERAL
     Dosage: UNK
  2. MORPHINE [Concomitant]
     Dosage: UNK
  3. PLETAL [Concomitant]
     Dosage: UNK
  4. PROZAC [Concomitant]
     Dosage: UNK
  5. DEPAKOTE [Concomitant]
     Dosage: UNK
  6. OXYCONTIN [Concomitant]
     Dosage: UNK
  7. LANOXIN [Concomitant]
     Dosage: UNK
  8. COLCHICINE [Concomitant]
     Dosage: UNK
  9. SYNTHROID [Concomitant]
     Dosage: UNK
  10. RANITIDINE [Concomitant]
     Dosage: UNK
  11. CARISOPRODOL [Concomitant]
     Dosage: UNK
  12. ALLOPURINOL [Concomitant]
     Dosage: UNK
  13. ACCUPRIL [Concomitant]
     Dosage: UNK
  14. DURAGESIC-100 [Concomitant]
     Dosage: UNK
  15. ASPIRINE [Concomitant]
     Dosage: UNK

REACTIONS (4)
  - COMPLETED SUICIDE [None]
  - DRUG INEFFECTIVE [None]
  - GUN SHOT WOUND [None]
  - PAIN [None]
